FAERS Safety Report 6156596-5 (Version None)
Quarter: 2009Q2

REPORT INFORMATION
  Report Type: 
  Country: None (occurrence: None)
  Receive Date: 20090413
  Receipt Date: 20090106
  Transmission Date: 20091009
  Serious: Yes (Death, Other)
  Sender: FDA-Public Use
  Company Number: OPER20090003

PATIENT
  Age: 29 Year
  Sex: Female

DRUGS (8)
  1. OPANA ER [Suspect]
     Indication: BACK PAIN
     Dosage: 1 TAB Q12H, PER ORAL
     Route: 048
     Dates: start: 20060801
  2. OPANA ER [Suspect]
     Indication: RADICULOPATHY
     Dosage: 1 TAB Q12H, PER ORAL
     Route: 048
     Dates: start: 20060801
  3. OPANA [Suspect]
     Indication: BREAKTHROUGH PAIN
     Dosage: 1-2 TABS TID PRN, PER ORAL
     Route: 048
     Dates: start: 20060801
  4. ZANAFLEX [Concomitant]
  5. LYRICA [Concomitant]
  6. ZOLOFT [Concomitant]
  7. IMITREX [Concomitant]
  8. HYDROCHLOROTHIAZIDE [Concomitant]

REACTIONS (1)
  - INTENTIONAL DRUG MISUSE [None]
